FAERS Safety Report 6298902-7 (Version None)
Quarter: 2009Q3

REPORT INFORMATION
  Report Type: 
  Country: None (occurrence: None)
  Receive Date: 20090804
  Receipt Date: 20090721
  Transmission Date: 20100115
  Serious: Yes (Hospitalization, Other)
  Sender: FDA-Public Use
  Company Number: ADE2009-0759

PATIENT
  Age: 57 Year
  Sex: Male

DRUGS (2)
  1. PAROXETINE [Suspect]
     Indication: ANXIETY
     Dosage: 30MG, UNK, UNK
  2. CLOZARIL [Suspect]
     Indication: SCHIZOPHRENIA
     Dosage: 600MG, DAILY, ORAL
     Route: 048
     Dates: start: 19900905, end: 20070316

REACTIONS (6)
  - DIZZINESS [None]
  - HAEMORRHOID INFECTION [None]
  - HYPOTENSION [None]
  - PLATELET COUNT INCREASED [None]
  - SCHIZOPHRENIA [None]
  - SCROTAL GANGRENE [None]
